FAERS Safety Report 7624797-2 (Version None)
Quarter: 2011Q3

REPORT INFORMATION
  Report Type: 
  Country: None (occurrence: None)
  Receive Date: 20110720
  Receipt Date: 20110718
  Transmission Date: 20111222
  Serious: Yes (Other)
  Sender: FDA-Public Use
  Company Number: US-PFIZER INC-2011147278

PATIENT
  Sex: Male

DRUGS (4)
  1. LYRICA [Suspect]
     Indication: DIABETIC NEUROPATHY
     Dosage: 75 MG, 3X/DAY
     Route: 048
     Dates: end: 20110627
  2. NEURONTIN [Concomitant]
     Dosage: UNK
  3. MORPHINE SULFATE [Concomitant]
     Dosage: UNK
  4. MS CONTIN [Concomitant]
     Dosage: 60 MG, 2X/DAY

REACTIONS (6)
  - FRUSTRATION [None]
  - GAIT DISTURBANCE [None]
  - INFLUENZA LIKE ILLNESS [None]
  - NAUSEA [None]
  - PAIN IN EXTREMITY [None]
  - MALAISE [None]
